FAERS Safety Report 6146751-2 (Version None)
Quarter: 2009Q2

REPORT INFORMATION
  Report Type: 
  Country: None (occurrence: None)
  Receive Date: 20090403
  Receipt Date: 20090403
  Transmission Date: 20091009
  Serious: Yes (Other)
  Sender: FDA-Public Use
  Company Number: None

PATIENT
  Age: 16 Year
  Sex: Female
  Weight: 52.6173 kg

DRUGS (1)
  1. LEVETIRACETAM [Suspect]
     Indication: MYOCLONIC EPILEPSY
     Dosage: 6 ML BID PO
     Route: 048
     Dates: start: 20090217, end: 20090319

REACTIONS (3)
  - DIZZINESS [None]
  - MYOCLONUS [None]
  - PRODUCT QUALITY ISSUE [None]
